FAERS Safety Report 25466672 (Version 3)
Quarter: 2025Q3

REPORT INFORMATION
  Report Type: Spontaneous
  Country: EU (occurrence: EU)
  Receive Date: 20250623
  Receipt Date: 20250809
  Transmission Date: 20251020
  Serious: Yes (Other)
  Sender: ALEXION PHARMACEUTICALS
  Company Number: EU-AstraZeneca-2024A148188

PATIENT
  Age: 37 Year
  Sex: Female

DRUGS (6)
  1. SAPHNELO [Suspect]
     Active Substance: ANIFROLUMAB-FNIA
  2. PREDNISONE [Concomitant]
     Active Substance: PREDNISONE
     Route: 065
  3. HYDROXYCHLOROQUINE [Concomitant]
     Active Substance: HYDROXYCHLOROQUINE
  4. RAMIPRIL [Concomitant]
     Active Substance: RAMIPRIL
  5. AZATHIOPRINE [Concomitant]
     Active Substance: AZATHIOPRINE
  6. KARDEGIC [Concomitant]
     Active Substance: ASPIRIN DL-LYSINE

REACTIONS (2)
  - Exposure during pregnancy [Unknown]
  - Systemic lupus erythematosus [Unknown]
